FAERS Safety Report 20961961 (Version 3)
Quarter: 2022Q2

REPORT INFORMATION
  Report Type: Report from Study
  Country: CN (occurrence: CN)
  Receive Date: 20220615
  Receipt Date: 20220624
  Transmission Date: 20220721
  Serious: Yes (Death, Life-Threatening, Hospitalization)
  Sender: FDA-Public Use
  Company Number: CN-PFIZER INC-202200825074

PATIENT
  Age: 66 Year
  Sex: Male
  Weight: 70 kg

DRUGS (21)
  1. CISPLATIN [Suspect]
     Active Substance: CISPLATIN
     Indication: Non-small cell lung cancer
     Dosage: 75 MILLIGRAM/SQ. METER, Q3W, INTRAVENOUS INFUSION
     Route: 042
     Dates: start: 20200522, end: 20200629
  2. CISPLATIN [Suspect]
     Active Substance: CISPLATIN
     Dosage: 75 MILLIGRAM/SQ. METER, Q3W, INTRAVENOUS INFUSION
     Route: 042
     Dates: start: 20200724, end: 20200724
  3. GEMCITABINE HYDROCHLORIDE [Suspect]
     Active Substance: GEMCITABINE HYDROCHLORIDE
     Indication: Non-small cell lung cancer
     Dosage: 1000 MILLIGRAM/SQ. METER, Q3W, POWDER FOR INJECTION
     Route: 042
     Dates: start: 20200522, end: 20200706
  4. GEMCITABINE HYDROCHLORIDE [Suspect]
     Active Substance: GEMCITABINE HYDROCHLORIDE
     Dosage: 1000 MILLIGRAM/SQ. METER, Q3W, POWDER FOR INJECTION
     Route: 042
     Dates: start: 20200724, end: 20200724
  5. INVESTIGATIONAL PRODUCT [Suspect]
     Active Substance: INVESTIGATIONAL PRODUCT
     Indication: Non-small cell lung cancer
     Dosage: UNK, Q3W, POWDER FOR INJECTION
     Route: 042
     Dates: start: 20200522, end: 20200629
  6. INVESTIGATIONAL PRODUCT [Suspect]
     Active Substance: INVESTIGATIONAL PRODUCT
     Dosage: UNK, Q3W, POWDER FOR INJECTION
     Route: 042
     Dates: start: 20200724, end: 20200724
  7. CODEINE PHOSPHATE [Concomitant]
     Active Substance: CODEINE PHOSPHATE
     Dosage: 30 MG
     Dates: start: 20200509, end: 20200809
  8. DEXAMETHASONE [Concomitant]
     Active Substance: DEXAMETHASONE
     Dosage: 6 MG
     Dates: start: 20200724, end: 20200726
  9. FINASTERIDE [Concomitant]
     Active Substance: FINASTERIDE
     Dosage: 5 MG
     Dates: start: 20200525, end: 20200808
  10. TAMSULOSIN HYDROCHLORIDE [Concomitant]
     Active Substance: TAMSULOSIN HYDROCHLORIDE
     Dosage: 1 MG
     Dates: start: 20200525, end: 20200808
  11. ONDANSETRON HYDROCHLORIDE [Concomitant]
     Active Substance: ONDANSETRON HYDROCHLORIDE
     Dosage: 8 MG
     Dates: start: 20200724, end: 20200727
  12. PANTOPRAZOLE SODIUM [Concomitant]
     Active Substance: PANTOPRAZOLE SODIUM
     Dosage: 40 MG
     Dates: start: 20200724, end: 20200727
  13. FUROSEMIDE SODIUM [Concomitant]
     Active Substance: FUROSEMIDE SODIUM
     Dosage: 20 MG
     Dates: start: 20200724, end: 20200727
  14. APREPITANT [Concomitant]
     Active Substance: APREPITANT
     Dosage: 1 DOSAGE FORM
     Dates: start: 20200724, end: 20200727
  15. DI SAI MI SONG LIN SUAN NA ZHU SHE YE [Concomitant]
     Dosage: 10 MG
     Dates: start: 20200724, end: 20200724
  16. CARBOHYDRATES NOS/FATS NOS/FIBRE, DIETARY/MINERALS NOS/PROTEINS NOS/VI [Concomitant]
     Dosage: 500 ML
     Dates: start: 20200724, end: 20200727
  17. MAGNESIUM ISOGLYCYRRHIZINATE [Concomitant]
     Active Substance: MAGNESIUM ISOGLYCYRRHIZINATE
     Dosage: 100 MG
     Dates: start: 20200724, end: 20200727
  18. ASCORBIC ACID [Concomitant]
     Active Substance: ASCORBIC ACID
     Dosage: 1 G
     Dates: start: 20200724, end: 20200727
  19. INSULIN NOS [Concomitant]
     Active Substance: INSULIN NOS
     Dosage: 4 IU
     Dates: start: 20200724, end: 20200727
  20. DIPHENHYDRAMINE HYDROCHLORIDE [Concomitant]
     Active Substance: DIPHENHYDRAMINE HYDROCHLORIDE
     Dosage: 20 MG
     Dates: start: 20200724, end: 20200724
  21. ESTAZOLAM [Concomitant]
     Active Substance: ESTAZOLAM
     Dosage: 1 MG
     Dates: start: 20200725, end: 20200725

REACTIONS (4)
  - Pneumonia [Fatal]
  - Hyponatraemia [Fatal]
  - Pulmonary embolism [Fatal]
  - Arrhythmia [Fatal]

NARRATIVE: CASE EVENT DATE: 20200727
